FAERS Safety Report 5864699-5 (Version None)
Quarter: 2008Q3

REPORT INFORMATION
  Report Type: 
  Country: None (occurrence: None)
  Receive Date: 20080829
  Receipt Date: 20080612
  Transmission Date: 20090109
  Serious: No
  Sender: FDA-Public Use
  Company Number: US-BAYER-200826461NA

PATIENT
  Sex: Female
  Weight: 56 kg

DRUGS (1)
  1. MIRENA [Suspect]
     Indication: CONTRACEPTION
     Route: 015
     Dates: start: 20080203

REACTIONS (5)
  - ALOPECIA [None]
  - COMPLICATION OF DEVICE INSERTION [None]
  - DYSPAREUNIA [None]
  - NO ADVERSE EVENT [None]
  - PELVIC PAIN [None]
